FAERS Safety Report 17971454 (Version 7)
Quarter: 2025Q4

REPORT INFORMATION
  Report Type: Spontaneous
  Country: US (occurrence: US)
  Receive Date: 20200702
  Receipt Date: 20251113
  Transmission Date: 20260118
  Serious: Yes (Other)
  Sender: GILEAD
  Company Number: US-GILEAD-2020-0477831

PATIENT
  Age: 32 Year
  Sex: Male
  Weight: 84.36 kg

DRUGS (42)
  1. TRUVADA [Suspect]
     Active Substance: EMTRICITABINE\TENOFOVIR DISOPROXIL FUMARATE
     Indication: HIV infection
     Dosage: UNK
     Route: 048
     Dates: start: 20110621, end: 20140716
  2. TRUVADA [Suspect]
     Active Substance: EMTRICITABINE\TENOFOVIR DISOPROXIL FUMARATE
     Dosage: UNK
     Route: 048
     Dates: start: 20110324, end: 20140716
  3. ATRIPLA [Suspect]
     Active Substance: EFAVIRENZ\EMTRICITABINE\TENOFOVIR DISOPROXIL FUMARATE
     Indication: HIV infection
     Dosage: UNK
     Route: 048
     Dates: start: 20091023, end: 20110621
  4. EMTRIVA [Concomitant]
     Active Substance: EMTRICITABINE
  5. ACETAMINOPHEN [Concomitant]
     Active Substance: ACETAMINOPHEN
  6. ACYCLOVIR [Concomitant]
     Active Substance: ACYCLOVIR
  7. ATORVASTATIN [Concomitant]
     Active Substance: ATORVASTATIN
  8. ESOMEPRAZOLE [Concomitant]
     Active Substance: ESOMEPRAZOLE
  9. PANTOPRAZOLE [Concomitant]
     Active Substance: PANTOPRAZOLE
  10. PENICILLIN [Concomitant]
     Active Substance: PENICILLIN
  11. PRAVASTATIN [Concomitant]
     Active Substance: PRAVASTATIN
  12. PREDNISONE [Concomitant]
     Active Substance: PREDNISONE
  13. ISENTRESS [Concomitant]
     Active Substance: RALTEGRAVIR POTASSIUM
  14. TIVICAY [Concomitant]
     Active Substance: DOLUTEGRAVIR SODIUM
  15. TRIUMEQ [Concomitant]
     Active Substance: ABACAVIR SULFATE\DOLUTEGRAVIR SODIUM\LAMIVUDINE
  16. ZIAGEN [Concomitant]
     Active Substance: ABACAVIR SULFATE
  17. LEVEMIR [Concomitant]
     Active Substance: INSULIN DETEMIR
  18. NEXIUM I.V. [Concomitant]
     Active Substance: ESOMEPRAZOLE SODIUM
  19. NOVOLOG [Concomitant]
     Active Substance: INSULIN ASPART
  20. HUMALOG [Concomitant]
     Active Substance: INSULIN LISPRO
  21. XANAX [Concomitant]
     Active Substance: ALPRAZOLAM
  22. CEPHALEXIN [Concomitant]
     Active Substance: CEPHALEXIN
  23. SULFAMETHOXAZOLE\TRIMETHOPRIM [Concomitant]
     Active Substance: SULFAMETHOXAZOLE\TRIMETHOPRIM
  24. METOPROLOL [Concomitant]
     Active Substance: METOPROLOL
  25. METRONIDAZOLE [Concomitant]
     Active Substance: METRONIDAZOLE
  26. CLONAZEPAM [Concomitant]
     Active Substance: CLONAZEPAM
  27. PROCTOFOAM HC [Concomitant]
     Active Substance: HYDROCORTISONE ACETATE\PRAMOXINE HYDROCHLORIDE
  28. ZOLPIDEM [Concomitant]
     Active Substance: ZOLPIDEM TARTRATE
  29. DOXYCYCLINE [Concomitant]
     Active Substance: DOXYCYCLINE
  30. SUPRAX [Concomitant]
     Active Substance: CEFIXIME
  31. TRIAMCINOLONE ACETONIDE [Concomitant]
     Active Substance: TRIAMCINOLONE ACETONIDE
  32. DOCQLACE [Concomitant]
     Active Substance: DOCUSATE SODIUM
  33. TAMIFLU [Concomitant]
     Active Substance: OSELTAMIVIR PHOSPHATE
  34. ALBUTEROL SULFATE [Concomitant]
     Active Substance: ALBUTEROL SULFATE
  35. GENTAMICIN [Concomitant]
     Active Substance: GENTAMICIN
  36. PROVENTIL [Concomitant]
     Active Substance: ALBUTEROL
  37. TAMSULOSIN [Concomitant]
     Active Substance: TAMSULOSIN
  38. ROPINIROLE [Concomitant]
     Active Substance: ROPINIROLE
  39. PROCHLORPERAZINE [Concomitant]
     Active Substance: PROCHLORPERAZINE
  40. LAMIVUDINE [Concomitant]
     Active Substance: LAMIVUDINE
  41. ONDANSETRON [Concomitant]
     Active Substance: ONDANSETRON
  42. LEVOFLOXACIN [Concomitant]
     Active Substance: LEVOFLOXACIN

REACTIONS (13)
  - Multiple fractures [Unknown]
  - Chronic kidney disease [Not Recovered/Not Resolved]
  - Osteonecrosis [Unknown]
  - Renal failure [Not Recovered/Not Resolved]
  - Bone loss [Not Recovered/Not Resolved]
  - Bone density decreased [Unknown]
  - Tooth loss [Not Recovered/Not Resolved]
  - Poor dental condition [Unknown]
  - Pain [Not Recovered/Not Resolved]
  - Emotional distress [Not Recovered/Not Resolved]
  - Depression [Not Recovered/Not Resolved]
  - Anxiety [Not Recovered/Not Resolved]
  - Foot fracture [Not Recovered/Not Resolved]

NARRATIVE: CASE EVENT DATE: 20120701
